FAERS Safety Report 4845505-4 (Version None)
Quarter: 2005Q4

REPORT INFORMATION
  Report Type: 
  Country: None (occurrence: None)
  Receive Date: 20051201
  Receipt Date: 20051116
  Transmission Date: 20060501
  Serious: Yes (Death)
  Sender: FDA-Public Use
  Company Number: 2005S1011267

PATIENT
  Age: 43 Year
  Sex: Male

DRUGS (14)
  1. CLOZAPINE [Suspect]
     Dosage: SEE IMAGE
     Route: 048
     Dates: start: 20040601, end: 20051019
  2. BENZTROPINE MESYLATE [Concomitant]
  3. HALOPERIDOL [Concomitant]
  4. HYDROXYZINE HYDROCHLORIDE [Concomitant]
  5. GEMFIBROZIL [Concomitant]
  6. DOCUSATE SODIUM [Concomitant]
  7. VALPROATE SODIUM [Concomitant]
  8. LANSOPRAZOLE [Concomitant]
  9. METOPROLOL TARTRATE [Concomitant]
  10. LITHIUM [Concomitant]
  11. ATORVASTATIN CALCIUM [Concomitant]
  12. LEVOTHYROXINE SODIUM [Concomitant]
  13. DIAZEPAM [Concomitant]
  14. PARACETAMOL/HYDROCODONE BITARTRATE [Concomitant]

REACTIONS (1)
  - ANEURYSM [None]
